FAERS Safety Report 9408418 (Version 3)
Quarter: 2013Q3

REPORT INFORMATION
  Report Type: Spontaneous
  Country: CA (occurrence: CA)
  Receive Date: 20130718
  Receipt Date: 20130823
  Transmission Date: 20140515
  Serious: Yes (Death, Hospitalization)
  Sender: FDA-Public Use
  Company Number: CA-GLAXOSMITHKLINE-A1032155A

PATIENT
  Age: 74 Year
  Sex: Female
  Weight: 105 kg

DRUGS (4)
  1. BENLYSTA [Suspect]
     Indication: SYSTEMIC LUPUS ERYTHEMATOSUS
     Dosage: 850MG SEE DOSAGE TEXT
     Route: 042
     Dates: start: 20120322
  2. PREDNISONE [Concomitant]
  3. METHOTREXATE [Concomitant]
  4. PLAQUENIL [Concomitant]

REACTIONS (6)
  - Intestinal obstruction [Recovered/Resolved]
  - Death [Fatal]
  - Infection [Unknown]
  - Diverticulum [Unknown]
  - Impaired healing [Unknown]
  - Movement disorder [Unknown]
